FAERS Safety Report 9695926 (Version 1)
Quarter: 2013Q4

REPORT INFORMATION
  Report Type: Spontaneous
  Country: US (occurrence: None)
  Receive Date: 20131118
  Receipt Date: 20131118
  Transmission Date: 20140711
  Serious: No
  Sender: FDA-Public Use
  Company Number: None

PATIENT
  Age: 82 Year
  Sex: Female
  Weight: 55.79 kg

DRUGS (14)
  1. BENZONATATE [Suspect]
     Indication: COUGH
     Dosage: 30 CAPSULES TWICE DAILY BY MOUTH
     Route: 048
     Dates: start: 20131101, end: 20131109
  2. MYLAN PATCH(SOY ESTRADIOL) [Concomitant]
  3. LEVOTHYROXINE [Concomitant]
  4. NIACINAMIDE [Concomitant]
  5. ACIDOPHILUS/BIFIDUS [Concomitant]
  6. OMEGA 3 [Concomitant]
  7. LUTEIN [Concomitant]
  8. VITAMIN C [Concomitant]
  9. GREEN TEA [Concomitant]
  10. CALCIUM CITRATE [Concomitant]
  11. B6 [Concomitant]
  12. B COMPLEX [Concomitant]
  13. D3 [Concomitant]
  14. POTASSIUM [Concomitant]

REACTIONS (1)
  - Diarrhoea [None]
